FAERS Safety Report 12552680 (Version 2)
Quarter: 2016Q3

REPORT INFORMATION
  Report Type: Spontaneous
  Country: BR (occurrence: BR)
  Receive Date: 20160713
  Receipt Date: 20160805
  Transmission Date: 20161109
  Serious: Yes (Other)
  Sender: FDA-Public Use
  Company Number: BR-PFIZER INC-2016334122

PATIENT
  Age: 49 Year
  Sex: Male
  Weight: 74 kg

DRUGS (1)
  1. CITRATO DE SILDENAFILA TEUTO [Suspect]
     Active Substance: SILDENAFIL CITRATE
     Indication: SEXUAL DYSFUNCTION
     Dosage: HALF TABLET AT THE NIGHT, UNK
     Dates: start: 20160702, end: 201607

REACTIONS (6)
  - Hypoacusis [Not Recovered/Not Resolved]
  - Tinnitus [Not Recovered/Not Resolved]
  - Dry mouth [Not Recovered/Not Resolved]
  - Formication [Not Recovered/Not Resolved]
  - Intentional product misuse [Recovered/Resolved]
  - Feeling hot [Not Recovered/Not Resolved]

NARRATIVE: CASE EVENT DATE: 201607
